FAERS Safety Report 5256232-6 (Version None)
Quarter: 2007Q1

REPORT INFORMATION
  Report Type: 
  Country: None (occurrence: None)
  Receive Date: 20070302
  Receipt Date: 20070302
  Transmission Date: 20070707
  Serious: Yes (Other)
  Sender: FDA-Public Use
  Company Number: None

PATIENT
  Sex: Male
  Weight: 130.1823 kg

DRUGS (2)
  1. GABAPENTIN [Suspect]
     Indication: DIABETIC NEUROPATHY
     Dosage: 200MG QD PO
     Route: 048
     Dates: start: 20061228, end: 20070105
  2. PREGABALIN 50MG [Suspect]
     Indication: DIABETIC NEUROPATHY
     Dosage: 50MG TID PO
     Route: 048
     Dates: start: 20070110, end: 20070123

REACTIONS (3)
  - ASTHENIA [None]
  - SOMNOLENCE [None]
  - TREMOR [None]
